FAERS Safety Report 7865508-5 (Version None)
Quarter: 2011Q4

REPORT INFORMATION
  Report Type: 
  Country: None (occurrence: None)
  Receive Date: 20111028
  Receipt Date: 20110110
  Transmission Date: 20120403
  Serious: No
  Sender: FDA-Public Use
  Company Number: US-GLAXOSMITHKLINE-A0904949A

PATIENT
  Sex: Male

DRUGS (2)
  1. SPIRIVA [Concomitant]
  2. ADVAIR DISKUS 100/50 [Suspect]
     Indication: PRODUCT USED FOR UNKNOWN INDICATION
     Route: 065

REACTIONS (4)
  - TREMOR [None]
  - WHITE BLOOD CELL COUNT INCREASED [None]
  - BLOOD GLUCOSE FLUCTUATION [None]
  - NERVOUSNESS [None]
